FAERS Safety Report 8772121 (Version 2)
Quarter: 2012Q4

REPORT INFORMATION
  Report Type: 
  Country: US (occurrence: US)
  Receive Date: 20120906
  Receipt Date: 20120927
  Transmission Date: 20130627
  Serious: No
  Sender: FDA-Public Use
  Company Number: US-009507513-1209USA001141

PATIENT
  Age: 70 Year
  Sex: Male

DRUGS (2)
  1. JANUMET [Suspect]
     Indication: DIABETES MELLITUS
     Dosage: 500 mg / 50 mg, bid
     Route: 048
     Dates: start: 201112
  2. GLIPIZIDE [Concomitant]

REACTIONS (1)
  - Abdominal pain [Unknown]
